FAERS Safety Report 8477263-9 (Version None)
Quarter: 2012Q2

REPORT INFORMATION
  Report Type: 
  Country: None (occurrence: None)
  Receive Date: 20120622
  Receipt Date: 20120608
  Transmission Date: 20120825
  Serious: Yes (Hospitalization)
  Sender: FDA-Public Use
  Company Number: JPI-P-021482

PATIENT
  Age: 53 Year
  Sex: Female

DRUGS (6)
  1. CYCLOBENZAPRINE HCL [Concomitant]
  2. XYREM [Suspect]
     Indication: CATAPLEXY
     Dosage: 3 GM (1.5 GM, 2 IN 1 D), ORAL
     Route: 048
     Dates: start: 20111005, end: 20120101
  3. XYREM [Suspect]
     Indication: CATAPLEXY
     Dosage: 3 GM (1.5 GM, 2 IN 1 D), ORAL
     Route: 048
     Dates: start: 20120101
  4. HYDROCODONE [Concomitant]
  5. DIAZEPAM [Concomitant]
  6. METHADONE HYDROCHLORIDE [Concomitant]

REACTIONS (6)
  - INSOMNIA [None]
  - THERAPY CESSATION [None]
  - BACK PAIN [None]
  - MUSCLE SPASMS [None]
  - CERVICAL SPINAL STENOSIS [None]
  - DRUG INEFFECTIVE [None]
